FAERS Safety Report 6172089-3 (Version None)
Quarter: 2009Q2

REPORT INFORMATION
  Report Type: 
  Country: None (occurrence: None)
  Receive Date: 20090429
  Receipt Date: 20090422
  Transmission Date: 20091009
  Serious: Yes (Hospitalization)
  Sender: FDA-Public Use
  Company Number: JP-B.I. PHARMACEUTICALS,INC./RIDGEFIELD-2009-DE-02466GD

PATIENT
  Sex: Female

DRUGS (10)
  1. MICARDIS [Suspect]
     Indication: ESSENTIAL HYPERTENSION
     Dosage: 40MG
     Route: 048
     Dates: start: 20070228, end: 20070731
  2. AMARYL [Concomitant]
     Dosage: 6MG
     Route: 048
     Dates: start: 20070801, end: 20080129
  3. MELBIN [Concomitant]
     Dosage: 500MG
     Route: 048
     Dates: start: 20070411, end: 20080129
  4. BASEN [Concomitant]
     Dosage: .6MG
     Route: 048
     Dates: start: 20070801, end: 20080129
  5. AMLODIPINE [Concomitant]
     Dosage: 5MG
     Route: 048
     Dates: start: 20070801, end: 20080129
  6. OLMETEC [Concomitant]
     Dosage: 40MG
     Route: 048
     Dates: start: 20070801, end: 20080129
  7. MUCOSTA [Concomitant]
     Route: 048
     Dates: start: 20070801, end: 20080129
  8. DAONIL [Concomitant]
     Dosage: 2.5MG
     Route: 048
     Dates: start: 20070228, end: 20070731
  9. ACTOS [Concomitant]
     Dosage: 30MG
     Route: 048
     Dates: start: 20070411, end: 20070731
  10. GASLON N [Concomitant]
     Dosage: 4MG
     Route: 048
     Dates: start: 20070228, end: 20070731

REACTIONS (2)
  - ALTERED STATE OF CONSCIOUSNESS [None]
  - HYPOGLYCAEMIA [None]
